FAERS Safety Report 10875164 (Version 3)
Quarter: 2015Q1

REPORT INFORMATION
  Report Type: Spontaneous
  Country: US (occurrence: US)
  Receive Date: 20150227
  Receipt Date: 20150330
  Transmission Date: 20150721
  Serious: No
  Sender: FDA-Public Use
  Company Number: US-TEVA-544514USA

PATIENT
  Age: 19 Year
  Sex: Female
  Weight: 43.58 kg

DRUGS (1)
  1. PLAN B ONE-STEP [Suspect]
     Active Substance: LEVONORGESTREL
     Indication: POST COITAL CONTRACEPTION
     Dosage: 1.5 MILLIGRAM DAILY;
     Route: 048
     Dates: start: 20150223, end: 20150223

REACTIONS (7)
  - Fungal infection [Recovered/Resolved]
  - Urine abnormality [Recovered/Resolved]
  - Vulvovaginal pruritus [Recovered/Resolved]
  - Dysuria [Recovered/Resolved]
  - Vaginal discharge [Recovered/Resolved]
  - Urinary tract infection [Unknown]
  - Urine odour abnormal [Recovered/Resolved]

NARRATIVE: CASE EVENT DATE: 20150225
